FAERS Safety Report 5518583-7 (Version None)
Quarter: 2007Q4

REPORT INFORMATION
  Report Type: 
  Country: None (occurrence: None)
  Receive Date: 20071113
  Receipt Date: 20071029
  Transmission Date: 20080405
  Serious: Yes (Hospitalization)
  Sender: FDA-Public Use
  Company Number: 013261

PATIENT
  Age: 43 Year
  Sex: Male

DRUGS (2)
  1. PRIALT [Suspect]
     Indication: BACK PAIN
     Dosage: 0.15 UG, ONCE/HOUR, INTRATHECAL
     Route: 039
     Dates: start: 20070921, end: 20070927
  2. NEURONTIN [Concomitant]

REACTIONS (4)
  - ALLODYNIA [None]
  - DYSAESTHESIA [None]
  - PAIN [None]
  - PARAESTHESIA [None]
